FAERS Safety Report 22189158 (Version 5)
Quarter: 2023Q4

REPORT INFORMATION
  Report Type: Spontaneous
  Country: US (occurrence: US)
  Receive Date: 20230410
  Receipt Date: 20231102
  Transmission Date: 20240109
  Serious: Yes (Other)
  Sender: FDA-Public Use
  Company Number: US-AMGEN-USASP2023059693

PATIENT
  Age: 25 Year
  Sex: Male

DRUGS (1)
  1. OTEZLA [Suspect]
     Active Substance: APREMILAST
     Indication: Psoriatic arthropathy
     Dosage: 30 MILLIGRAM, BID
     Route: 048
     Dates: start: 20221208

REACTIONS (3)
  - Psoriatic arthropathy [Not Recovered/Not Resolved]
  - Product dose omission issue [Unknown]
  - Adverse event [Recovered/Resolved]

NARRATIVE: CASE EVENT DATE: 20230401
